FAERS Safety Report 4894814-1 (Version None)
Quarter: 2006Q1

REPORT INFORMATION
  Report Type: 
  Country: None (occurrence: None)
  Receive Date: 20060130
  Receipt Date: 20060118
  Transmission Date: 20060701
  Serious: Yes (Other)
  Sender: FDA-Public Use
  Company Number: BR-BRISTOL-MYERS SQUIBB COMPANY-13254099

PATIENT
  Age: 40 Year
  Sex: Male

DRUGS (7)
  1. DIDANOSINE [Suspect]
  2. INDINAVIR [Suspect]
  3. LAMIVUDINE + ZIDOVUDINE [Suspect]
  4. RIFABUTIN [Suspect]
  5. SULFAMETHOXAZOLE + TRIMETHOPRIM [Suspect]
  6. FENOFIBRATE [Suspect]
  7. ACYCLOVIR [Suspect]

REACTIONS (1)
  - CORNEAL DEPOSITS [None]
